FAERS Safety Report 4955238-1 (Version None)
Quarter: 2006Q1

REPORT INFORMATION
  Report Type: 
  Country: None (occurrence: None)
  Receive Date: 20060328
  Receipt Date: 20060321
  Transmission Date: 20060701
  Serious: Yes (Death, Hospitalization)
  Sender: FDA-Public Use
  Company Number: 2006GB00496

PATIENT
  Age: 65 Year
  Sex: Male

DRUGS (3)
  1. CASODEX [Suspect]
     Indication: ANTIANDROGEN THERAPY
     Route: 048
     Dates: start: 20060301
  2. ZOMETA [Concomitant]
     Indication: METASTASES TO BONE
  3. NSAID [Concomitant]

REACTIONS (1)
  - HAEMORRHAGE [None]
